FAERS Safety Report 21853930 (Version 1)
Quarter: 2023Q1

REPORT INFORMATION
  Report Type: Spontaneous
  Country: US (occurrence: None)
  Receive Date: 20230111
  Receipt Date: 20230111
  Transmission Date: 20230417
  Serious: Yes (Hospitalization)
  Sender: FDA-Public Use
  Company Number: None

PATIENT
  Age: 77 Year
  Sex: Male

DRUGS (1)
  1. ABIRATERONE [Suspect]
     Active Substance: ABIRATERONE
     Dosage: 1000 MG DAILY ORAL
     Route: 048
     Dates: start: 20221220, end: 20230106

REACTIONS (7)
  - Musculoskeletal stiffness [None]
  - Asthenia [None]
  - Decreased appetite [None]
  - Fluid intake reduced [None]
  - Chromaturia [None]
  - Blood calcium decreased [None]
  - Blood potassium decreased [None]

NARRATIVE: CASE EVENT DATE: 20230105
